FAERS Safety Report 6652382-8 (Version None)
Quarter: 2010Q1

REPORT INFORMATION
  Report Type: 
  Country: None (occurrence: None)
  Receive Date: 20100325
  Receipt Date: 20100317
  Transmission Date: 20100710
  Serious: Yes (Other)
  Sender: FDA-Public Use
  Company Number: BR-ABBOTT-10P-020-0633156-00

PATIENT
  Sex: Female
  Weight: 62 kg

DRUGS (10)
  1. HUMIRA [Suspect]
     Indication: RHEUMATOID ARTHRITIS
     Route: 058
  2. METHOTREXATE [Concomitant]
     Indication: RHEUMATOID ARTHRITIS
     Route: 048
  3. CATAFLAM [Concomitant]
     Indication: PAIN
     Route: 048
  4. CARDILOL [Concomitant]
     Indication: HYPERTENSION
     Route: 048
  5. ARADOIS [Concomitant]
     Indication: HYPERTENSION
     Route: 048
  6. UNKNOWN DRUG [Concomitant]
     Indication: DIABETES MELLITUS
     Route: 048
  7. OS-CAL [Concomitant]
     Indication: OSTEOPOROSIS
     Route: 048
  8. ALENDRONIC ACID [Concomitant]
     Indication: OSTEOPOROSIS
     Route: 048
  9. VITAMIN TAB [Concomitant]
     Indication: ANAEMIA
     Route: 048
  10. IRON [Concomitant]
     Indication: ANAEMIA
     Route: 048

REACTIONS (4)
  - ANAEMIA [None]
  - OSTEOPOROSIS [None]
  - RETINAL DETACHMENT [None]
  - RETINAL OEDEMA [None]
